FAERS Safety Report 8358303-4 (Version None)
Quarter: 2012Q2

REPORT INFORMATION
  Report Type: 
  Country: None (occurrence: None)
  Receive Date: 20120514
  Receipt Date: 20120508
  Transmission Date: 20120825
  Serious: Yes (Other)
  Sender: FDA-Public Use
  Company Number: GB-BAYER-2012-029320

PATIENT
  Age: 63 Year
  Sex: Male

DRUGS (1)
  1. CLOTRIMAZOLE [Suspect]
     Route: 061

REACTIONS (2)
  - BLISTER [None]
  - SKIN EXFOLIATION [None]
